FAERS Safety Report 17757874 (Version 2)
Quarter: 2020Q2

REPORT INFORMATION
  Report Type: Spontaneous
  Country: US (occurrence: US)
  Receive Date: 20200507
  Receipt Date: 20200515
  Transmission Date: 20200714
  Serious: No
  Sender: FDA-Public Use
  Company Number: US-PFIZER INC-2020181405

PATIENT
  Age: 80 Year
  Sex: Female
  Weight: 70.31 kg

DRUGS (2)
  1. PREGABALIN. [Suspect]
     Active Substance: PREGABALIN
     Indication: NEUROPATHY PERIPHERAL
     Dosage: 25 MG, 1X/DAY (ONE CAPSULE AT NIGHT BY MOUTH DAILY)
     Route: 048
     Dates: start: 2019, end: 2019
  2. LACTAID [Concomitant]
     Active Substance: LACTASE
     Dosage: UNK
     Dates: start: 2019

REACTIONS (7)
  - Abdominal discomfort [Recovered/Resolved]
  - Insomnia [Unknown]
  - Abdominal distension [Unknown]
  - Malaise [Recovered/Resolved]
  - Gastrooesophageal reflux disease [Unknown]
  - Abdominal pain upper [Unknown]
  - Nausea [Unknown]

NARRATIVE: CASE EVENT DATE: 2019
